FAERS Safety Report 9167640 (Version 1)
Quarter: 2013Q1

REPORT INFORMATION
  Report Type: Spontaneous
  Country: GB (occurrence: None)
  Receive Date: 20130307
  Receipt Date: 20130307
  Transmission Date: 20140127
  Serious: Yes (Other)
  Sender: FDA-Public Use
  Company Number: CL-476-2013

PATIENT
  Age: 84 Year
  Sex: Female

DRUGS (2)
  1. ONDANSETRON [Suspect]
     Indication: NAUSEA
     Dosage: 8MG BD UNK (OTHER REMARK)??THERAPY DATES (} 2 DAYS)
  2. MIRTAZAPINE [Suspect]
     Dosage: UNK UNK UNK

REACTIONS (1)
  - Drug interaction [None]
